FAERS Safety Report 15668804 (Version 1)
Quarter: 2018Q4

REPORT INFORMATION
  Report Type: Spontaneous
  Country: US (occurrence: US)
  Receive Date: 20181129
  Receipt Date: 20181129
  Transmission Date: 20190205
  Serious: No
  Sender: FDA-Public Use
  Company Number: US-TORRENT-00006834

PATIENT
  Sex: Female
  Weight: 55 kg

DRUGS (3)
  1. NEXIUM [Concomitant]
     Active Substance: ESOMEPRAZOLE MAGNESIUM
     Indication: PRODUCT USED FOR UNKNOWN INDICATION
     Dosage: UNK
  2. LEVOTHYROXINE SODIUM. [Concomitant]
     Active Substance: LEVOTHYROXINE SODIUM
     Indication: PRODUCT USED FOR UNKNOWN INDICATION
     Dosage: UNK
  3. LOSARTAN POTASSIUM. [Suspect]
     Active Substance: LOSARTAN POTASSIUM
     Indication: HYPERTENSION
     Dosage: NDC# 13668-0409-10

REACTIONS (8)
  - Pain [Unknown]
  - Hypoaesthesia [Unknown]
  - Eye disorder [Unknown]
  - Drug ineffective [Unknown]
  - Paraesthesia [Unknown]
  - Lip swelling [Unknown]
  - Headache [Unknown]
  - Hyperhidrosis [Unknown]
